FAERS Safety Report 12307643 (Version 1)
Quarter: 2016Q2

REPORT INFORMATION
  Report Type: Spontaneous
  Country: US (occurrence: US)
  Receive Date: 20160426
  Receipt Date: 20160426
  Transmission Date: 20160815
  Serious: No
  Sender: FDA-Public Use
  Company Number: US-ALKERMES INC.-ALK-2015-001187

PATIENT
  Age: 32 Year
  Sex: Male
  Weight: 113.38 kg

DRUGS (6)
  1. TOPAMAX [Concomitant]
     Active Substance: TOPIRAMATE
     Indication: SEIZURE
     Dosage: UNK
  2. FIORINAL [Concomitant]
     Active Substance: ASPIRIN\BUTALBITAL\CAFFEINE
     Indication: MIGRAINE
     Dosage: UNK
  3. XANAX [Concomitant]
     Active Substance: ALPRAZOLAM
     Indication: ANXIETY
     Dosage: UNK
  4. VIVITROL [Suspect]
     Active Substance: NALTREXONE
     Indication: DRUG DEPENDENCE
     Dosage: 380 MG, QMO
     Route: 030
     Dates: start: 20151016
  5. PROPRANOLOL [Concomitant]
     Active Substance: PROPRANOLOL\PROPRANOLOL HYDROCHLORIDE
     Indication: SEIZURE
     Dosage: UNK
  6. LEXAPRO [Concomitant]
     Active Substance: ESCITALOPRAM OXALATE
     Indication: DEPRESSION
     Dosage: UNK

REACTIONS (1)
  - Diplopia [Recovering/Resolving]

NARRATIVE: CASE EVENT DATE: 20151016
